FAERS Safety Report 12805582 (Version 1)
Quarter: 2016Q4

REPORT INFORMATION
  Report Type: Spontaneous
  Country: US (occurrence: US)
  Receive Date: 20161004
  Receipt Date: 20161004
  Transmission Date: 20170207
  Serious: No
  Sender: FDA-Public Use
  Company Number: US-ASTRAZENECA-2016SF04476

PATIENT
  Age: 84 Year
  Sex: Female
  Weight: 77.1 kg

DRUGS (6)
  1. RHINOCORT ALLERGY [Suspect]
     Active Substance: BUDESONIDE
     Indication: SINUS DISORDER
     Route: 045
     Dates: start: 201609, end: 20160919
  2. ANTIBIOTIC [Concomitant]
     Active Substance: UNSPECIFIED INGREDIENT
     Indication: NASOPHARYNGITIS
  3. RHINOCORT ALLERGY [Suspect]
     Active Substance: BUDESONIDE
     Indication: NASOPHARYNGITIS
     Route: 045
     Dates: start: 201609, end: 20160919
  4. ANTIBIOTIC [Concomitant]
     Active Substance: UNSPECIFIED INGREDIENT
     Indication: SINUS CONGESTION
  5. RHINOCORT ALLERGY [Suspect]
     Active Substance: BUDESONIDE
     Indication: SINUS CONGESTION
     Route: 045
     Dates: start: 201609, end: 20160919
  6. ANTIBIOTIC [Concomitant]
     Active Substance: UNSPECIFIED INGREDIENT
     Indication: SINUS DISORDER

REACTIONS (3)
  - Off label use [Not Recovered/Not Resolved]
  - Bloody discharge [Not Recovered/Not Resolved]
  - Product use issue [Not Recovered/Not Resolved]

NARRATIVE: CASE EVENT DATE: 201609
